FAERS Safety Report 11923911 (Version 1)
Quarter: 2016Q1

REPORT INFORMATION
  Report Type: Spontaneous
  Country: US (occurrence: US)
  Receive Date: 20160118
  Receipt Date: 20160118
  Transmission Date: 20160526
  Serious: Yes (Death)
  Sender: FDA-Public Use
  Company Number: US-APOTEX-2016AP005272

PATIENT
  Age: 60 Year
  Sex: Female

DRUGS (2)
  1. FLUOXETINE ORAL SOLUTION USP [Suspect]
     Active Substance: FLUOXETINE HYDROCHLORIDE
     Indication: PRODUCT USED FOR UNKNOWN INDICATION
     Route: 048
  2. DRAIN CLEANER [Suspect]
     Active Substance: UNSPECIFIED INGREDIENT

REACTIONS (2)
  - Exposure via ingestion [None]
  - Completed suicide [Fatal]
